FAERS Safety Report 17030239 (Version 1)
Quarter: 2019Q4

REPORT INFORMATION
  Report Type: Spontaneous
  Country: US (occurrence: US)
  Receive Date: 20191114
  Receipt Date: 20191114
  Transmission Date: 20200122
  Serious: No
  Sender: FDA-Public Use
  Company Number: US-MYLANLABS-2019M1105852

PATIENT
  Sex: Male
  Weight: 80 kg

DRUGS (1)
  1. SCOPOLAMINE TRANSDERMAL SYSTEM [Suspect]
     Active Substance: SCOPOLAMINE
     Indication: MOTION SICKNESS
     Dosage: UNK UNK, PRN (EVERY 3 DAYS)
     Route: 062
     Dates: start: 20191001, end: 20191020

REACTIONS (6)
  - Product adhesion issue [Unknown]
  - Dysphagia [Unknown]
  - Feeling abnormal [Unknown]
  - Dizziness [Unknown]
  - Weight decreased [Unknown]
  - Decreased appetite [Unknown]

NARRATIVE: CASE EVENT DATE: 2019
